FAERS Safety Report 4332055-7 (Version None)
Quarter: 2004Q2

REPORT INFORMATION
  Report Type: 
  Country: None (occurrence: None)
  Receive Date: 20040401
  Receipt Date: 20040401
  Transmission Date: 20050107
  Serious: Yes (Hospitalization)
  Sender: FDA-Public Use
  Company Number: None

PATIENT
  Age: 47 Year
  Sex: Male
  Weight: 108.2 kg

DRUGS (5)
  1. CISPLATIN [Suspect]
     Indication: CARCINOMA
     Dosage: 200 MG Q 21 DAYS IV
     Route: 042
     Dates: start: 20040324, end: 20040324
  2. ATENOLOL [Concomitant]
  3. MORPHINE [Concomitant]
  4. ENALAPRIL MALEATE [Concomitant]
  5. EXTERNAL BEAM RADIATION THERAPY [Concomitant]

REACTIONS (4)
  - DEHYDRATION [None]
  - HAEMATEMESIS [None]
  - NAUSEA [None]
  - RENAL FAILURE ACUTE [None]
